FAERS Safety Report 7929817-3 (Version None)
Quarter: 2011Q4

REPORT INFORMATION
  Report Type: 
  Country: None (occurrence: None)
  Receive Date: 20111121
  Receipt Date: 20111114
  Transmission Date: 20120403
  Serious: Yes (Other)
  Sender: FDA-Public Use
  Company Number: US-BRISTOL-MYERS SQUIBB COMPANY-16162414

PATIENT
  Sex: Male

DRUGS (1)
  1. PRAVACHOL [Suspect]
     Indication: BLOOD CHOLESTEROL
     Dates: start: 20090313, end: 20110514

REACTIONS (7)
  - NASOPHARYNGITIS [None]
  - FALL [None]
  - PYREXIA [None]
  - MALAISE [None]
  - MUSCULOSKELETAL PAIN [None]
  - DIZZINESS [None]
  - RETINAL DETACHMENT [None]
